FAERS Safety Report 21878562 (Version 1)
Quarter: 2023Q1

REPORT INFORMATION
  Report Type: Spontaneous
  Country: JP (occurrence: JP)
  Receive Date: 20230118
  Receipt Date: 20230118
  Transmission Date: 20230417
  Serious: Yes (Hospitalization, Other)
  Sender: FDA-Public Use
  Company Number: JP-PFIZER INC-PV202300005682

PATIENT
  Age: 83 Year
  Sex: Female

DRUGS (1)
  1. METHOTREXATE SODIUM [Suspect]
     Active Substance: METHOTREXATE SODIUM
     Indication: Rheumatoid arthritis
     Dosage: UNK, DAILY
     Route: 048

REACTIONS (7)
  - Accidental overdose [Recovering/Resolving]
  - Contraindicated product administered [Recovering/Resolving]
  - Pancytopenia [Recovering/Resolving]
  - Agranulocytosis [Recovering/Resolving]
  - Pyrexia [Unknown]
  - Epistaxis [Unknown]
  - Oral disorder [Unknown]
